FAERS Safety Report 6860428-7 (Version None)
Quarter: 2010Q3

REPORT INFORMATION
  Report Type: 
  Country: None (occurrence: None)
  Receive Date: 20100720
  Receipt Date: 20100712
  Transmission Date: 20110219
  Serious: Yes (Hospitalization, Other)
  Sender: FDA-Public Use
  Company Number: IT-ABBOTT-10P-083-0656754-00

PATIENT
  Age: 10 Year
  Sex: Female

DRUGS (5)
  1. ADALIMUMAB [Suspect]
     Indication: JUVENILE ARTHRITIS
  2. INFLIXIMAB [Suspect]
     Indication: JUVENILE ARTHRITIS
  3. NONSTEROIDAL ANTI-INFLAMMATORY DRUGS [Concomitant]
     Indication: JUVENILE ARTHRITIS
  4. PREDNISONE [Concomitant]
     Indication: JUVENILE ARTHRITIS
     Route: 048
  5. METHOTREXATE [Concomitant]
     Indication: JUVENILE ARTHRITIS

REACTIONS (1)
  - SYDENHAM'S CHOREA [None]
